FAERS Safety Report 19983547 (Version 2)
Quarter: 2021Q4

REPORT INFORMATION
  Report Type: Spontaneous
  Country: US (occurrence: US)
  Receive Date: 20211021
  Receipt Date: 20211025
  Transmission Date: 20220304
  Serious: Yes (Other)
  Sender: FDA-Public Use
  Company Number: US-GLAXOSMITHKLINE-US2021GSK219063

PATIENT
  Sex: Male

DRUGS (4)
  1. ZANTAC [Suspect]
     Active Substance: RANITIDINE HYDROCHLORIDE
     Indication: Gastrooesophageal reflux disease
     Dosage: TO BE SUPPLEMENTED, EVERY OTHER DAY, USED INTERCHANGEABLY WITH RANITIDINE
     Route: 065
     Dates: start: 200101, end: 201512
  2. ZANTAC [Suspect]
     Active Substance: RANITIDINE HYDROCHLORIDE
     Indication: Gastrooesophageal reflux disease
     Dosage: TO BE SUPPLEMENTED, EVERY OTHER DAY, USED INTERCHANGEABLY WITH RANITIDINE
     Route: 065
     Dates: start: 200101, end: 201512
  3. RANITIDINE [Suspect]
     Active Substance: RANITIDINE
     Indication: Gastrooesophageal reflux disease
     Dosage: TO BE SUPPLEMENTED, EVERY OTHER DAY, USED INTERCHANGEABLY WITH ZANTAC
     Route: 065
     Dates: start: 200101, end: 201512
  4. RANITIDINE [Suspect]
     Active Substance: RANITIDINE
     Indication: Gastrooesophageal reflux disease
     Dosage: TO BE SUPPLEMENTED, EVERY OTHER DAY, USED INTERCHANGEABLY WITH ZANTAC
     Route: 065
     Dates: start: 200101, end: 201512

REACTIONS (1)
  - Prostate cancer [Unknown]
